FAERS Safety Report 8116013-2 (Version None)
Quarter: 2012Q1

REPORT INFORMATION
  Report Type: 
  Country: None (occurrence: None)
  Receive Date: 20120206
  Receipt Date: 20120125
  Transmission Date: 20120608
  Serious: Yes (Hospitalization, Other)
  Sender: FDA-Public Use
  Company Number: SE-ROCHE-1035313

PATIENT
  Sex: Female

DRUGS (5)
  1. LUCENTIS [Suspect]
     Indication: PRODUCT USED FOR UNKNOWN INDICATION
     Dates: start: 20110622
  2. LUCENTIS [Suspect]
     Dates: start: 20111111
  3. LUCENTIS [Suspect]
     Dates: start: 20110720
  4. LUCENTIS [Suspect]
     Dates: start: 20110818
  5. LUCENTIS [Suspect]
     Dates: start: 20111011

REACTIONS (2)
  - VISUAL ACUITY REDUCED [None]
  - PULMONARY EMBOLISM [None]
